FAERS Safety Report 18797921 (Version 5)
Quarter: 2022Q4

REPORT INFORMATION
  Report Type: Report from Study
  Country: PL (occurrence: None)
  Receive Date: 20210128
  Receipt Date: 20221212
  Transmission Date: 20230113
  Serious: Yes (Hospitalization)
  Sender: FDA-Public Use
  Company Number: PL-ROCHE-2757541

PATIENT
  Age: 70 Year
  Sex: Male
  Weight: 95 kg

DRUGS (7)
  1. ATEZOLIZUMAB [Suspect]
     Active Substance: ATEZOLIZUMAB
     Indication: Renal cell carcinoma
     Dosage: ON 28/DEC/2020, HE RECEIVED THE MOST RECENT DOSE OF ATEZOLIZUMAB (1200 MG) PRIOR TO SERIOUS ADVERSE
     Route: 041
     Dates: start: 20201116
  2. CABOZANTINIB [Suspect]
     Active Substance: CABOZANTINIB
     Indication: Renal cell carcinoma
     Dosage: ON 17/JAN/2021, HE RECEIVED THE MOST RECENT DOSE OF CABOZANTINIB (60 MG) PRIOR TO SERIOUS ADVERSE EV
     Route: 048
     Dates: start: 20201116
  3. ZOLEDRONIC ACID [Concomitant]
     Active Substance: ZOLEDRONIC ACID
     Indication: Metastases to bone
     Route: 042
     Dates: start: 20190606
  4. BISOPROLOL [Concomitant]
     Active Substance: BISOPROLOL
     Indication: Hypertension
     Route: 048
     Dates: start: 2015
  5. CO-VALSACOR [Concomitant]
     Indication: Hypertension
     Route: 048
     Dates: start: 2015
  6. TULIP (POLAND) [Concomitant]
     Indication: Hypertension
     Route: 048
     Dates: start: 2015
  7. DOXONEX [Concomitant]
     Indication: Hypertension
     Route: 048
     Dates: start: 2015

REACTIONS (1)
  - Anaemia [Recovered/Resolved]

NARRATIVE: CASE EVENT DATE: 20210125
